FAERS Safety Report 9752123 (Version 1)
Quarter: 2013Q4

REPORT INFORMATION
  Report Type: Spontaneous
  Country: RU (occurrence: RU)
  Receive Date: 20131213
  Receipt Date: 20131213
  Transmission Date: 20140711
  Serious: Yes (Other)
  Sender: FDA-Public Use
  Company Number: RU-RANBAXY-2013R3-75960

PATIENT
  Age: 22 Year
  Sex: Male

DRUGS (1)
  1. SOTRET [Suspect]
     Indication: ACNE CONGLOBATA
     Dosage: 10 MG, QID
     Route: 048
     Dates: start: 201304, end: 201305

REACTIONS (1)
  - Blood bilirubin increased [Recovering/Resolving]
